FAERS Safety Report 21605315 (Version 1)
Quarter: 2022Q4

REPORT INFORMATION
  Report Type: Spontaneous
  Country: US (occurrence: US)
  Receive Date: 20221116
  Receipt Date: 20221116
  Transmission Date: 20230112
  Serious: No
  Sender: FDA-Public Use
  Company Number: US-PERRIGO-22US010309

PATIENT
  Sex: Female

DRUGS (2)
  1. POLYETHYLENE GLYCOL 3350 [Suspect]
     Active Substance: POLYETHYLENE GLYCOL 3350
     Indication: Constipation
     Dosage: 17 G, QD
     Route: 048
  2. BENEFIBER FIBER SUPPLEMENT [Concomitant]
     Indication: Constipation
     Dosage: UNK
     Route: 065

REACTIONS (2)
  - Frequent bowel movements [Unknown]
  - Incorrect product administration duration [Unknown]
